FAERS Safety Report 5932363-X (Version None)
Quarter: 2008Q4

REPORT INFORMATION
  Report Type: 
  Country: None (occurrence: None)
  Receive Date: 20081028
  Receipt Date: 20081023
  Transmission Date: 20090506
  Serious: Yes (Hospitalization, Other)
  Sender: FDA-Public Use
  Company Number: US-BRISTOL-MYERS SQUIBB COMPANY-14381198

PATIENT
  Age: 67 Year
  Sex: Male
  Weight: 86 kg

DRUGS (2)
  1. CETUXIMAB [Suspect]
     Indication: HEAD AND NECK CANCER
     Dosage: INITIAL DOSE : 17SEP08
     Dates: start: 20081013, end: 20081013
  2. CISPLATIN [Suspect]
     Indication: HEAD AND NECK CANCER
     Dosage: INITIAL DOSE : 17SEP08
     Dates: start: 20081013, end: 20081013

REACTIONS (6)
  - ANAEMIA [None]
  - DIARRHOEA [None]
  - FATIGUE [None]
  - HYPOKALAEMIA [None]
  - HYPONATRAEMIA [None]
  - ILEUS [None]
